FAERS Safety Report 7533507-9 (Version None)
Quarter: 2011Q2

REPORT INFORMATION
  Report Type: 
  Country: None (occurrence: None)
  Receive Date: 20110608
  Receipt Date: 20060211
  Transmission Date: 20111010
  Serious: Yes (Hospitalization)
  Sender: FDA-Public Use
  Company Number: PHHO2006PH02545

PATIENT
  Sex: Female

DRUGS (4)
  1. PLAVIX [Concomitant]
  2. DIOVAN [Suspect]
     Indication: HYPERTENSION
     Dosage: 80 MG, DAILY
     Route: 048
     Dates: start: 20051013, end: 20060104
  3. ALDACTONE [Concomitant]
  4. IBUPROFEN W/PARACETAMOL [Concomitant]

REACTIONS (1)
  - CELLULITIS [None]
